FAERS Safety Report 4503128-0 (Version None)
Quarter: 2004Q4

REPORT INFORMATION
  Report Type: 
  Country: None (occurrence: None)
  Receive Date: 20041116
  Receipt Date: 20041116
  Transmission Date: 20050328
  Serious: Yes (Other)
  Sender: FDA-Public Use
  Company Number: None

PATIENT
  Age: 25 Year
  Sex: Female

DRUGS (3)
  1. NICODERM CQ [Suspect]
     Indication: SMOKING CESSATION THERAPY
     Dosage: TRANSDERMAL
     Route: 062
     Dates: start: 20040907
  2. COMMIT [Suspect]
     Indication: SMOKING CESSATION THERAPY
     Dosage: 20 MG ORAL
     Route: 048
     Dates: start: 20040914
  3. METHADONE [Concomitant]

REACTIONS (6)
  - DEATH NEONATAL [None]
  - DRUG EXPOSURE DURING PREGNANCY [None]
  - NAUSEA [None]
  - PELVIC PAIN [None]
  - PREMATURE LABOUR [None]
  - VOMITING [None]
